FAERS Safety Report 9011934 (Version 1)
Quarter: 2012Q4

REPORT INFORMATION
  Report Type: Spontaneous
  Country: BE (occurrence: None)
  Receive Date: 20121228
  Receipt Date: 20121228
  Transmission Date: 20130627
  Serious: Yes (Other)
  Sender: FDA-Public Use
  Company Number: FK201204173

PATIENT
  Age: 62 Year
  Sex: Female

DRUGS (3)
  1. OCTREOTIDE [Suspect]
     Indication: DRUG THERAPY
     Route: 058
  2. OCTREOTIDE [Suspect]
     Indication: DRUG THERAPY
     Route: 058
  3. OCTREOTIDE [Suspect]
     Indication: DRUG THERAPY
     Route: 058

REACTIONS (7)
  - Vitamin A deficiency [None]
  - Night blindness [None]
  - Steatorrhoea [None]
  - Diarrhoea [None]
  - Nausea [None]
  - Vomiting [None]
  - Retinitis pigmentosa [None]
